FAERS Safety Report 5965831-5 (Version None)
Quarter: 2008Q4

REPORT INFORMATION
  Report Type: 
  Country: None (occurrence: None)
  Receive Date: 20081125
  Receipt Date: 20081121
  Transmission Date: 20090506
  Serious: Yes (Hospitalization)
  Sender: FDA-Public Use
  Company Number: GB-ROCHE-598599

PATIENT
  Age: 14 Year
  Sex: Female
  Weight: 133 kg

DRUGS (5)
  1. ORLISTAT [Suspect]
     Indication: DRUG USE FOR UNKNOWN INDICATION
     Route: 065
  2. ACETAMINOPHEN W/ CODEINE [Concomitant]
  3. CYCLIZINE [Concomitant]
     Route: 048
  4. HYOSCINE NOS [Concomitant]
     Route: 048
  5. OMEPRAZOLE [Concomitant]
     Route: 048

REACTIONS (2)
  - BILIARY COLIC [None]
  - CHOLELITHIASIS [None]
